FAERS Safety Report 9645423 (Version 2)
Quarter: 2013Q4

REPORT INFORMATION
  Report Type: Spontaneous
  Country: GB (occurrence: None)
  Receive Date: 20131023
  Receipt Date: 20131031
  Transmission Date: 20140711
  Serious: Yes (Hospitalization)
  Sender: FDA-Public Use
  Company Number: AUR-APL-2013-08643

PATIENT
  Age: 69 Year
  Sex: Male

DRUGS (8)
  1. CIPROFLOXACIN [Suspect]
     Indication: URINARY TRACT INFECTION
     Dosage: 500 MG, 2 IN 1 D
     Dates: start: 20120405
  2. RAMIPRIL (RAMIPRIL) [Suspect]
     Indication: PRODUCT USED FOR UNKNOWN INDICATION
  3. TRIMETHOPRIM (TRIMETHOPRIM) [Suspect]
     Indication: URINARY TRACT INFECTION
     Dosage: 200 MG, 2 IN 1 D
     Dates: start: 20120401
  4. DIGOXIN (DIGOXIN) [Suspect]
     Indication: ATRIAL FIBRILLATION
     Dosage: 250 MCG, 1 IN 1 D
     Dates: start: 20120409, end: 20120413
  5. WARFARIN (WARFARIN) [Suspect]
     Indication: PRODUCT USED FOR UNKNOWN INDICATION
  6. ATENOLOL (ATENOLOL) [Concomitant]
  7. ATORVASTATIN (ATORVASTATIN) [Concomitant]
  8. FINASTERIDE (FINASTERIDE) [Concomitant]

REACTIONS (6)
  - Nausea [None]
  - Vomiting [None]
  - Atrial fibrillation [None]
  - Renal failure acute [None]
  - Toxicity to various agents [None]
  - International normalised ratio increased [None]
